FAERS Safety Report 15003580 (Version 1)
Quarter: 2018Q2

REPORT INFORMATION
  Report Type: Spontaneous
  Country: FR (occurrence: FR)
  Receive Date: 20180613
  Receipt Date: 20180613
  Transmission Date: 20180711
  Serious: Yes (Hospitalization)
  Sender: FDA-Public Use
  Company Number: FR-TEVA-2018-FR-906885

PATIENT
  Age: 76 Year
  Sex: Female
  Weight: 60 kg

DRUGS (10)
  1. NEOFORDEX [Suspect]
     Active Substance: DEXAMETHASONE ACETATE
     Indication: PLASMA CELL MYELOMA
     Dosage: 20 MILLIGRAM DAILY;
     Route: 048
     Dates: start: 20180312, end: 20180319
  2. REVLIMID [Suspect]
     Active Substance: LENALIDOMIDE
     Indication: PLASMA CELL MYELOMA
     Dosage: 1 DOSAGE FORMS DAILY;
     Route: 048
     Dates: start: 20180312, end: 20180316
  3. PANTOPRAZOLE [Concomitant]
     Active Substance: PANTOPRAZOLE
     Dosage: 20 MILLIGRAM DAILY;
     Route: 048
  4. ATENOLOL. [Concomitant]
     Active Substance: ATENOLOL
     Route: 048
  5. SIMVASTATINE [Concomitant]
     Active Substance: SIMVASTATIN
     Dosage: 20 MILLIGRAM DAILY;
     Route: 048
  6. CLAMOXYL (AMOXICILLIN) [Suspect]
     Active Substance: AMOXICILLIN
     Indication: ANTIBIOTIC PROPHYLAXIS
     Dosage: 2 GRAM DAILY;
     Route: 048
     Dates: start: 20180212, end: 20180315
  7. ZELITREX [Suspect]
     Active Substance: VALACYCLOVIR HYDROCHLORIDE
     Indication: PROPHYLAXIS
     Route: 048
     Dates: start: 20180212, end: 20180315
  8. RAMIPRIL. [Suspect]
     Active Substance: RAMIPRIL
     Indication: HYPERTENSION
     Dosage: 5 MILLIGRAM DAILY;
     Route: 048
     Dates: start: 2005
  9. BACTRIM [Suspect]
     Active Substance: SULFAMETHOXAZOLE\TRIMETHOPRIM
     Indication: ANTIBIOTIC PROPHYLAXIS
     Route: 048
     Dates: start: 20180212, end: 20180315
  10. KARDEGIC [Concomitant]
     Active Substance: ASPIRIN DL-LYSINE
     Dosage: 1 DOSAGE FORMS DAILY;
     Route: 048

REACTIONS (2)
  - Rash erythematous [Recovering/Resolving]
  - Angioedema [Recovering/Resolving]

NARRATIVE: CASE EVENT DATE: 20180316
